FAERS Safety Report 8393422-8 (Version None)
Quarter: 2012Q2

REPORT INFORMATION
  Report Type: 
  Country: None (occurrence: None)
  Receive Date: 20120529
  Receipt Date: 20120521
  Transmission Date: 20120825
  Serious: No
  Sender: FDA-Public Use
  Company Number: US-BAYER-2012-052710

PATIENT
  Age: 74 Year
  Sex: Female

DRUGS (4)
  1. ALEVE (CAPLET) [Suspect]
     Indication: ANALGESIC THERAPY
     Dosage: 1 TABLET AS NEEDED
     Route: 048
     Dates: start: 20120401, end: 20120401
  2. SYNTHROID [Concomitant]
  3. ALEVE (CAPLET) [Suspect]
     Dosage: 1 TABLET AS NEEDED - 50 COUNT
     Route: 048
     Dates: start: 20120501
  4. DIURETICS [Concomitant]

REACTIONS (2)
  - FEELING ABNORMAL [None]
  - CONTUSION [None]
